FAERS Safety Report 7043910-1 (Version None)
Quarter: 2010Q4

REPORT INFORMATION
  Report Type: 
  Country: None (occurrence: None)
  Receive Date: 20101012
  Receipt Date: 20101012
  Transmission Date: 20110411
  Serious: Yes (Other)
  Sender: FDA-Public Use
  Company Number: None

PATIENT
  Age: 40 Year
  Sex: Female
  Weight: 68.9467 kg

DRUGS (1)
  1. CLINDAMYCIN HCL [Suspect]
     Indication: TOOTH INFECTION
     Dosage: 300 MG 4 DAILY PO
     Route: 048
     Dates: start: 20100928, end: 20101007

REACTIONS (4)
  - ORAL DISORDER [None]
  - RASH PAPULAR [None]
  - SKIN IRRITATION [None]
  - TONGUE DISCOLOURATION [None]
